FAERS Safety Report 7412315-3 (Version None)
Quarter: 2011Q2

REPORT INFORMATION
  Report Type: 
  Country: None (occurrence: None)
  Receive Date: 20110413
  Receipt Date: 20110405
  Transmission Date: 20111010
  Serious: Yes (Hospitalization)
  Sender: FDA-Public Use
  Company Number: ES-JNJFOC-20110305878

PATIENT
  Age: 75 Year
  Sex: Female

DRUGS (5)
  1. IBUPROFEN [Suspect]
     Indication: PAIN
     Route: 048
  2. PAROXETINE [Concomitant]
     Indication: SPONDYLOLISTHESIS
  3. LORAZEPAM [Concomitant]
     Indication: ANXIETY
     Route: 048
  4. JURNISTA [Suspect]
     Indication: SPONDYLOLISTHESIS
     Route: 048
  5. LYRICA [Concomitant]
     Indication: SPONDYLOLISTHESIS
     Route: 048

REACTIONS (2)
  - RESPIRATORY FAILURE [None]
  - RENAL FAILURE [None]
